FAERS Safety Report 21752209 (Version 1)
Quarter: 2022Q4

REPORT INFORMATION
  Report Type: Spontaneous
  Country: US (occurrence: US)
  Receive Date: 20221220
  Receipt Date: 20221220
  Transmission Date: 20230112
  Serious: No
  Sender: FDA-Public Use
  Company Number: US-JNJFOC-20221221513

PATIENT
  Sex: Female

DRUGS (1)
  1. TYLENOL 8HR [Suspect]
     Active Substance: ACETAMINOPHEN
     Indication: Arthralgia
     Dosage: 8 TABLETS OR MORE N/A
     Route: 065
     Dates: start: 2022

REACTIONS (2)
  - Skin discolouration [Unknown]
  - Overdose [Unknown]

NARRATIVE: CASE EVENT DATE: 20220101
